FAERS Safety Report 6981458-0 (Version None)
Quarter: 2010Q3

REPORT INFORMATION
  Report Type: 
  Country: None (occurrence: None)
  Receive Date: 20100914
  Receipt Date: 20100910
  Transmission Date: 20110219
  Serious: Yes (Hospitalization)
  Sender: FDA-Public Use
  Company Number: US-GILEAD-2010-0031284

PATIENT
  Sex: Male

DRUGS (7)
  1. LETAIRIS [Suspect]
     Indication: PULMONARY ARTERIAL HYPERTENSION
     Route: 048
     Dates: start: 20100304
  2. REVATIO [Concomitant]
  3. TRANDOLAPRIL [Concomitant]
  4. PROPOXYPHENE NAPSYLATE AND ACETAMINOPHEN [Concomitant]
  5. OMEPRAZOLE [Concomitant]
  6. ZOLPIDEM [Concomitant]
  7. CYMBALTA [Concomitant]

REACTIONS (1)
  - LUNG TRANSPLANT [None]
